FAERS Safety Report 4535739-0 (Version None)
Quarter: 2004Q4

REPORT INFORMATION
  Report Type: 
  Country: None (occurrence: None)
  Receive Date: 20041223
  Receipt Date: 20040129
  Transmission Date: 20050328
  Serious: No
  Sender: FDA-Public Use
  Company Number: US-GLAXOSMITHKLINE-A0495720A

PATIENT
  Age: 61 Year
  Sex: Female

DRUGS (5)
  1. FLONASE [Suspect]
     Dosage: 50MCG PER DAY
     Route: 045
     Dates: start: 20030601, end: 20030801
  2. ADVAIR DISKUS 100/50 [Concomitant]
  3. CHOLESTEROL REDUCING AGENT NAME NOT KNOWN [Concomitant]
     Route: 065
  4. PRAVACHOL [Concomitant]
     Route: 065
  5. UNKNOWN MEDICATION [Concomitant]
     Route: 065

REACTIONS (1)
  - EPISTAXIS [None]
